FAERS Safety Report 24717974 (Version 1)
Quarter: 2024Q4

REPORT INFORMATION
  Report Type: Spontaneous
  Country: TR (occurrence: TR)
  Receive Date: 20241210
  Receipt Date: 20241210
  Transmission Date: 20250114
  Serious: Yes (Other)
  Sender: GLAXOSMITHKLINE
  Company Number: TR-GLAXOSMITHKLINE-TR2024TRK151902

PATIENT

DRUGS (1)
  1. LAMICTAL [Suspect]
     Active Substance: LAMOTRIGINE
     Indication: Fibromyalgia
     Dosage: 25 MG, 30 CIG TB
     Route: 048
     Dates: start: 20241107

REACTIONS (3)
  - Heart rate decreased [Recovering/Resolving]
  - Dysphagia [Recovering/Resolving]
  - Dyspnoea [Unknown]

NARRATIVE: CASE EVENT DATE: 20241107
